FAERS Safety Report 24061599 (Version 1)
Quarter: 2024Q3

REPORT INFORMATION
  Report Type: Spontaneous
  Country: US (occurrence: None)
  Receive Date: 20240706
  Receipt Date: 20240706
  Transmission Date: 20241017
  Serious: Yes (Other)
  Sender: Public
  Company Number: None

PATIENT
  Age: 47 Year
  Sex: Female
  Weight: 110.25 kg

DRUGS (5)
  1. VEOZAH [Suspect]
     Active Substance: FEZOLINETANT
     Indication: Hot flush
     Dosage: 1  TABLET DAILY ORAL?
     Route: 048
     Dates: start: 20240703, end: 20240705
  2. ELIQUIS [Concomitant]
     Active Substance: APIXABAN
  3. BYSTOLIC [Concomitant]
     Active Substance: NEBIVOLOL HYDROCHLORIDE
  4. CENTRUM WOMEN^S 50+ [Concomitant]
  5. METHYLCOBALAMIN [Concomitant]
     Active Substance: METHYLCOBALAMIN

REACTIONS (5)
  - Pharyngeal paraesthesia [None]
  - Headache [None]
  - Paraesthesia [None]
  - Diplopia [None]
  - Head discomfort [None]

NARRATIVE: CASE EVENT DATE: 20240705
